FAERS Safety Report 5154044-5 (Version None)
Quarter: 2006Q4

REPORT INFORMATION
  Report Type: 
  Country: None (occurrence: None)
  Receive Date: 20061115
  Receipt Date: 20061115
  Transmission Date: 20070319
  Serious: Yes (Other)
  Sender: FDA-Public Use
  Company Number: None

PATIENT
  Age: 3 Year
  Sex: Male

DRUGS (1)
  1. ATOPICLAIR CHESTER VALLEY PHARMACEUTICALS [Suspect]
     Indication: DERMATITIS ATOPIC
     Dosage: BID TOP
     Route: 061
     Dates: start: 20061019, end: 20061019

REACTIONS (3)
  - MEDICATION ERROR [None]
  - PHARMACEUTICAL PRODUCT COMPLAINT [None]
  - URTICARIA [None]
